FAERS Safety Report 11691271 (Version 2)
Quarter: 2015Q4

REPORT INFORMATION
  Report Type: Spontaneous
  Country: IT (occurrence: IT)
  Receive Date: 20151102
  Receipt Date: 20151105
  Transmission Date: 20160304
  Serious: Yes (Other)
  Sender: FDA-Public Use
  Company Number: IT-VALIDUS PHARMACEUTICALS LLC-IT-2015VAL000658

PATIENT
  Age: 56 Year
  Sex: Female

DRUGS (1)
  1. METOPROLOL TARTRATE. [Suspect]
     Active Substance: METOPROLOL TARTRATE
     Indication: HYPERTENSION
     Dosage: UNK
     Route: 048
     Dates: start: 201302

REACTIONS (8)
  - Disturbance in attention [Unknown]
  - Sneezing [Unknown]
  - Activities of daily living impaired [Unknown]
  - Arthralgia [Unknown]
  - Thirst [Unknown]
  - Dizziness [Unknown]
  - Headache [Unknown]
  - Dry mouth [Unknown]
